FAERS Safety Report 5926858-2 (Version None)
Quarter: 2008Q4

REPORT INFORMATION
  Report Type: 
  Country: None (occurrence: None)
  Receive Date: 20081022
  Receipt Date: 20081014
  Transmission Date: 20090506
  Serious: Yes (Hospitalization)
  Sender: FDA-Public Use
  Company Number: JP-ABBOTT-08P-087-0482553-00

PATIENT
  Age: 81 Year
  Sex: Female

DRUGS (15)
  1. VALPROATE SODIUM [Suspect]
     Indication: INSOMNIA
  2. VALPROATE SODIUM [Suspect]
     Indication: RESTLESSNESS
  3. VALPROATE SODIUM [Suspect]
     Indication: ANGER
  4. ZOPICLONE [Suspect]
     Indication: INSOMNIA
  5. ZOPICLONE [Suspect]
     Indication: RESTLESSNESS
  6. ZOPICLONE [Suspect]
     Indication: ANGER
  7. ETHYL LOFLAZEPATE [Suspect]
     Indication: INSOMNIA
  8. ETHYL LOFLAZEPATE [Suspect]
     Indication: RESTLESSNESS
  9. ETHYL LOFLAZEPATE [Suspect]
     Indication: ANGER
  10. FLUNITRAZEPAM [Suspect]
     Indication: INSOMNIA
  11. FLUNITRAZEPAM [Suspect]
     Indication: RESTLESSNESS
  12. FLUNITRAZEPAM [Suspect]
     Indication: ANGER
  13. TRIAZOLAM [Suspect]
     Indication: INSOMNIA
  14. TRIAZOLAM [Suspect]
     Indication: RESTLESSNESS
  15. TRIAZOLAM [Suspect]
     Indication: ANGER

REACTIONS (4)
  - AGITATION [None]
  - CONDITION AGGRAVATED [None]
  - DELIRIUM [None]
  - RESTLESSNESS [None]
